FAERS Safety Report 5826523-6 (Version None)
Quarter: 2008Q3

REPORT INFORMATION
  Report Type: 
  Country: None (occurrence: None)
  Receive Date: 20080725
  Receipt Date: 20080721
  Transmission Date: 20090109
  Serious: Yes (Other)
  Sender: FDA-Public Use
  Company Number: 2008019044

PATIENT
  Age: 43 Year
  Sex: Female
  Weight: 77.1115 kg

DRUGS (1)
  1. COOL MINT LISTERINE (MENTHOL, METHYL SALICYLATE, EUCALYPTOL, THYMOL) [Suspect]
     Dosage: HALF OF A 500ML BOTTLE A DAY, ORAL
     Route: 048

REACTIONS (1)
  - INTENTIONAL DRUG MISUSE [None]
